FAERS Safety Report 20012146 (Version 4)
Quarter: 2022Q2

REPORT INFORMATION
  Report Type: Spontaneous
  Country: US (occurrence: US)
  Receive Date: 20211028
  Receipt Date: 20220506
  Transmission Date: 20220720
  Serious: No
  Sender: FDA-Public Use
  Company Number: US-UNITED THERAPEUTICS-UNT-2021-019730

PATIENT
  Sex: Female
  Weight: 53.515 kg

DRUGS (7)
  1. TYVASO [Suspect]
     Active Substance: TREPROSTINIL
     Indication: Pulmonary arterial hypertension
     Dosage: UNK
     Dates: start: 20210126
  2. TYVASO [Suspect]
     Active Substance: TREPROSTINIL
     Dosage: 18-54 ?G, QID
     Dates: start: 2021
  3. TYVASO [Suspect]
     Active Substance: TREPROSTINIL
     Dosage: UNK
     Dates: start: 2021
  4. TYVASO [Suspect]
     Active Substance: TREPROSTINIL
     Dosage: UNK
     Dates: start: 2021
  5. OFEV [Suspect]
     Active Substance: NINTEDANIB
     Indication: Idiopathic pulmonary fibrosis
     Dosage: 300 MG, QD
     Route: 048
     Dates: start: 20210921, end: 20211109
  6. OFEV [Suspect]
     Active Substance: NINTEDANIB
     Dosage: 200 MG, QD
     Route: 048
     Dates: start: 20210921
  7. SILDENAFIL CITRATE [Concomitant]
     Active Substance: SILDENAFIL CITRATE
     Indication: Product used for unknown indication
     Dosage: UNK
     Route: 065

REACTIONS (12)
  - Headache [Unknown]
  - Diarrhoea [Unknown]
  - Nausea [Recovered/Resolved]
  - Chest pain [Unknown]
  - Gastrooesophageal reflux disease [Recovered/Resolved]
  - Constipation [Unknown]
  - Decreased appetite [Unknown]
  - Weight decreased [Unknown]
  - Dry mouth [Unknown]
  - Myalgia [Unknown]
  - Vomiting [Unknown]
  - Mobility decreased [Unknown]

NARRATIVE: CASE EVENT DATE: 20210101
